FAERS Safety Report 22831146 (Version 6)
Quarter: 2024Q1

REPORT INFORMATION
  Report Type: Report from Study
  Country: US (occurrence: US)
  Receive Date: 20230817
  Receipt Date: 20240210
  Transmission Date: 20240410
  Serious: Yes (Hospitalization, Other)
  Sender: FDA-Public Use
  Company Number: US-ABBVIE-5366573

PATIENT
  Age: 82 Year
  Sex: Male
  Weight: 81.646 kg

DRUGS (7)
  1. RINVOQ [Suspect]
     Active Substance: UPADACITINIB
     Indication: Pemphigoid
     Dosage: 15 MILLIGRAM?STOP DATE TEXT: -JAN-2023 OR -FEB-2023
     Route: 048
     Dates: start: 20221130
  2. RINVOQ [Suspect]
     Active Substance: UPADACITINIB
     Indication: Pemphigoid
     Dosage: 15 MG
     Route: 048
     Dates: start: 20230907
  3. RINVOQ [Suspect]
     Active Substance: UPADACITINIB
     Indication: Pemphigoid
     Dosage: 15 MG
     Route: 048
     Dates: start: 20230814, end: 20230906
  4. RINVOQ [Suspect]
     Active Substance: UPADACITINIB
     Indication: Pemphigoid
     Dosage: 15 MG?START DATE TEXT: -JAN-2023 OR -FEB-2023
     Route: 048
     Dates: end: 20230804
  5. PLAVIX [Concomitant]
     Active Substance: CLOPIDOGREL BISULFATE
     Indication: Anticoagulant therapy
     Dosage: STOP DATE: FIRST WEEK OF NOV 2023
     Dates: start: 202308, end: 202311
  6. COREG [Concomitant]
     Active Substance: CARVEDILOL
     Indication: Hypertension
  7. LIPITOR [Concomitant]
     Active Substance: ATORVASTATIN CALCIUM
     Indication: Blood cholesterol increased
     Dates: end: 202311

REACTIONS (13)
  - Cerebrovascular accident [Recovered/Resolved]
  - Arthralgia [Recovered/Resolved]
  - Off label use [Not Recovered/Not Resolved]
  - Blister [Recovered/Resolved]
  - Cough [Recovering/Resolving]
  - Asthenia [Recovered/Resolved]
  - Dysarthria [Recovered/Resolved]
  - Atypical pneumonia [Not Recovered/Not Resolved]
  - Bronchitis [Not Recovered/Not Resolved]
  - Pulmonary mass [Not Recovered/Not Resolved]
  - Pruritus [Recovered/Resolved]
  - Hypertension [Recovered/Resolved]
  - Confusional state [Recovered/Resolved]

NARRATIVE: CASE EVENT DATE: 20221130
